FAERS Safety Report 5112695-8 (Version None)
Quarter: 2006Q3

REPORT INFORMATION
  Report Type: 
  Country: None (occurrence: None)
  Receive Date: 20060922
  Receipt Date: 20051007
  Transmission Date: 20061208
  Serious: Yes (Other)
  Sender: FDA-Public Use
  Company Number: GB-GLAXOSMITHKLINE-B0396803A

PATIENT
  Sex: Male

DRUGS (5)
  1. SEROXAT [Suspect]
     Indication: SCHIZOPHRENIA
     Dosage: 30MG PER DAY
     Dates: start: 19960101
  2. SULPIRIDE [Concomitant]
     Indication: SCHIZOPHRENIA
  3. PROCYCLIDINE HYDROCHLORIDE 2MG TAB [Concomitant]
  4. ZOPICLONE [Concomitant]
  5. OLANZAPINE [Concomitant]
     Dosage: 7.5MG PER DAY

REACTIONS (5)
  - AGGRESSION [None]
  - COMPLETED SUICIDE [None]
  - DRY MOUTH [None]
  - ILL-DEFINED DISORDER [None]
  - TREMOR [None]
